FAERS Safety Report 19898472 (Version 1)
Quarter: 2021Q3

REPORT INFORMATION
  Report Type: Report from Study
  Country: DE (occurrence: DE)
  Receive Date: 20210929
  Receipt Date: 20210929
  Transmission Date: 20211014
  Serious: Yes (Other)
  Sender: FDA-Public Use
  Company Number: DE-ACCORD-214905

PATIENT
  Age: 16 Year
  Sex: Male

DRUGS (3)
  1. SERTRALINE [Suspect]
     Active Substance: SERTRALINE HYDROCHLORIDE
     Indication: AGGRESSION
     Dosage: 25 MG SERTRALINE PER DAY WAS INITIATED
  2. RISPERIDONE. [Concomitant]
     Active Substance: RISPERIDONE
  3. PIPAMPERONE/PIPAMPERONE HYDROCHLORIDE [Concomitant]
     Active Substance: PIPAMPERONE HYDROCHLORIDE

REACTIONS (4)
  - Condition aggravated [Unknown]
  - Off label use [Unknown]
  - Sleep disorder [Unknown]
  - Abnormal behaviour [Unknown]
